FAERS Safety Report 6628003-7 (Version None)
Quarter: 2010Q1

REPORT INFORMATION
  Report Type: 
  Country: None (occurrence: None)
  Receive Date: 20100311
  Receipt Date: 20090528
  Transmission Date: 20100710
  Serious: No
  Sender: FDA-Public Use
  Company Number: A0787027A

PATIENT
  Age: 62 Year
  Sex: Female

DRUGS (4)
  1. NICORETTE [Suspect]
  2. NICORETTE [Suspect]
  3. NICORETTE (MINT) [Suspect]
  4. COMMIT [Suspect]

REACTIONS (5)
  - DENTAL CARIES [None]
  - DRUG ADMINISTRATION ERROR [None]
  - GINGIVAL RECESSION [None]
  - INTENTIONAL DRUG MISUSE [None]
  - NICOTINE DEPENDENCE [None]
